FAERS Safety Report 10250549 (Version 1)
Quarter: 2014Q2

REPORT INFORMATION
  Report Type: Spontaneous
  Country: US (occurrence: US)
  Receive Date: 20140620
  Receipt Date: 20140620
  Transmission Date: 20141212
  Serious: Yes (Hospitalization)
  Sender: FDA-Public Use
  Company Number: US-GLAXOSMITHKLINE-A1077098A

PATIENT
  Age: 52 Year
  Sex: Male

DRUGS (3)
  1. ADVAIR HFA [Suspect]
     Indication: ASTHMA
     Dosage: 1PUFF TWICE PER DAY
     Route: 055
     Dates: start: 2011
  2. VENTOLIN [Suspect]
     Indication: ASTHMA
     Route: 055
     Dates: start: 2008
  3. THEOPHYLLINE [Concomitant]

REACTIONS (3)
  - Myocardial infarction [Not Recovered/Not Resolved]
  - Knee operation [Not Recovered/Not Resolved]
  - Accident at work [Not Recovered/Not Resolved]
